FAERS Safety Report 9663864 (Version 2)
Quarter: 2013Q4

REPORT INFORMATION
  Report Type: Report from Study
  Country: US (occurrence: US)
  Receive Date: 20131101
  Receipt Date: 20131114
  Transmission Date: 20140711
  Serious: Yes (Hospitalization)
  Sender: FDA-Public Use
  Company Number: US-PFIZER INC-2013302089

PATIENT
  Age: 68 Year
  Sex: Female
  Weight: 73.88 kg

DRUGS (9)
  1. PF-05280586 [Suspect]
     Indication: RHEUMATOID ARTHRITIS
     Dosage: 1000 MG, ONE INFUSION ON DAY 1 AND DAY 15 OF A 24 WEEK COURSE
     Route: 042
     Dates: start: 20130918, end: 20130918
  2. PF-05280586 [Suspect]
     Dosage: 1000 MG, ONE INFUSION ON DAY 1 AND DAY 15 OF A 24 WEEK COURSE
     Route: 042
     Dates: start: 20131001, end: 20131001
  3. SOLU-MEDROL [Suspect]
     Indication: PREMEDICATION
     Dosage: 100 MG, ONCE, ON DAY 1 AND DAY 15
     Route: 042
     Dates: start: 20130918, end: 20130918
  4. SOLU-MEDROL [Suspect]
     Dosage: 100 MG, ONCE, ON DAY 1 AND DAY 15
     Route: 042
     Dates: start: 20131001, end: 20131001
  5. METHOTREXATE [Concomitant]
     Indication: RHEUMATOID ARTHRITIS
     Dosage: 15 MG, WEEKLY
     Route: 048
     Dates: start: 20120410
  6. FOLIC ACID [Concomitant]
     Indication: SUPPLEMENTATION THERAPY
     Dosage: 2 MG, DAILY
     Route: 048
     Dates: start: 20130410
  7. ACETAMINOPHEN [Concomitant]
     Indication: SEASONAL ALLERGY
     Dosage: 325 MG, AS NEEDED
     Route: 048
     Dates: start: 2008
  8. GUAIFENESIN [Concomitant]
     Indication: SEASONAL ALLERGY
     Dosage: 200 MG, AS NEEDED
     Route: 048
     Dates: start: 2008
  9. PSEUDOEPHEDRINE [Concomitant]
     Indication: SEASONAL ALLERGY
     Dosage: 30 MG, AS NEEDED
     Route: 048
     Dates: start: 2008

REACTIONS (1)
  - Urinary tract infection [Recovered/Resolved]
